FAERS Safety Report 9947552 (Version 2)
Quarter: 2014Q1

REPORT INFORMATION
  Report Type: Report from Study
  Country: US (occurrence: US)
  Receive Date: 20140303
  Receipt Date: 20140303
  Transmission Date: 20141002
  Serious: Yes (Hospitalization, Other)
  Sender: FDA-Public Use
  Company Number: US-ABBVIE-13P-163-1061982-00

PATIENT
  Age: 30 Year
  Sex: Female

DRUGS (3)
  1. HUMIRA [Suspect]
     Indication: CROHN^S DISEASE
  2. APRISO [Concomitant]
     Indication: CROHN^S DISEASE
     Dosage: 6 CAPSULES DAILY
  3. 6-MP [Concomitant]
     Indication: CROHN^S DISEASE
     Dates: end: 2013

REACTIONS (1)
  - Crohn^s disease [Recovered/Resolved]
